FAERS Safety Report 18638993 (Version 1)
Quarter: 2020Q4

REPORT INFORMATION
  Report Type: Spontaneous
  Country: US (occurrence: US)
  Receive Date: 20201218
  Receipt Date: 20201218
  Transmission Date: 20210114
  Serious: No
  Sender: FDA-Public Use
  Company Number: US-PFIZER INC-2020499047

PATIENT
  Age: 50 Year
  Sex: Female
  Weight: 56 kg

DRUGS (1)
  1. INLYTA [Suspect]
     Active Substance: AXITINIB
     Dosage: 5 MG, 1 TABLET, 2X/DAY
     Route: 048
     Dates: start: 20200915

REACTIONS (7)
  - Peripheral swelling [Unknown]
  - Pain [Unknown]
  - Diarrhoea [Unknown]
  - Skin papilloma [Unknown]
  - Feeding disorder [Unknown]
  - Skin exfoliation [Unknown]
  - Oral discomfort [Unknown]

NARRATIVE: CASE EVENT DATE: 2020
